FAERS Safety Report 13929857 (Version 3)
Quarter: 2020Q2

REPORT INFORMATION
  Report Type: Spontaneous
  Country: GB (occurrence: GB)
  Receive Date: 20170901
  Receipt Date: 20200506
  Transmission Date: 20200713
  Serious: Yes (Death, Hospitalization)
  Sender: FDA-Public Use
  Company Number: GB-AUROBINDO-AUR-APL-2017-39396

PATIENT
  Age: 96 Year
  Sex: Female
  Weight: 60 kg

DRUGS (6)
  1. IBUPROFEN. [Suspect]
     Active Substance: IBUPROFEN
     Indication: PAIN
     Dosage: 400 MG, 3 TIMES A DAY
     Route: 065
     Dates: start: 2017, end: 2017
  2. XARELTO [Suspect]
     Active Substance: RIVAROXABAN
     Dosage: 20 MG, ONCE A DAY
     Dates: start: 2017, end: 2017
  3. IBUPROFEN. [Suspect]
     Active Substance: IBUPROFEN
     Dosage: 400 MG, 3 TIMES A DAY
     Dates: start: 2017, end: 20170508
  4. XARELTO [Suspect]
     Active Substance: RIVAROXABAN
     Indication: DEEP VEIN THROMBOSIS
     Dosage: 15 MG, TWO TIMES A DAY
     Route: 065
     Dates: start: 201702, end: 2017
  5. CEPHALEXIN                         /00145501/ [Suspect]
     Active Substance: CEPHALEXIN
     Indication: URINARY TRACT INFECTION
     Route: 065
  6. XARELTO [Suspect]
     Active Substance: RIVAROXABAN
     Dosage: 20 MILLIGRAM
     Dates: start: 2017, end: 20170508

REACTIONS (4)
  - Upper gastrointestinal haemorrhage [Fatal]
  - Acute kidney injury [Unknown]
  - Melaena [Unknown]
  - Incorrect dose administered [Unknown]

NARRATIVE: CASE EVENT DATE: 20170508
